FAERS Safety Report 4379291-1 (Version None)
Quarter: 2004Q2

REPORT INFORMATION
  Report Type: 
  Country: None (occurrence: None)
  Receive Date: 20040614
  Receipt Date: 20040601
  Transmission Date: 20050107
  Serious: Yes (Hospitalization)
  Sender: FDA-Public Use
  Company Number: 2004-BP-04257RO

PATIENT
  Age: 60 Year
  Sex: Male
  Weight: 68.6 kg

DRUGS (6)
  1. DEXAMETHASONE [Suspect]
     Indication: MULTIPLE MYELOMA
     Dosage: 40 MG DAILY PO
     Route: 048
     Dates: start: 20040308
  2. ZOLEDRONATE (ZOLEDRONATE T29581 + SOLING = MM) SOLUTION FOR INJECTION [Suspect]
     Indication: MULTIPLE MYELOMA
     Dosage: 4 MG MONTHLY 1 IN 1 M, IV
     Route: 042
     Dates: start: 20040323
  3. THALIDOMIDE (THALIDOMIDE) [Concomitant]
  4. COUMARIN (COUMARIN) [Concomitant]
  5. RANITIDINE [Concomitant]
  6. SEPTRA DS [Concomitant]

REACTIONS (3)
  - ASTHMA [None]
  - IMMUNODEFICIENCY [None]
  - PNEUMONIA [None]
